FAERS Safety Report 5912900-1 (Version None)
Quarter: 2008Q4

REPORT INFORMATION
  Report Type: 
  Country: None (occurrence: None)
  Receive Date: 20081008
  Receipt Date: 20081001
  Transmission Date: 20090506
  Serious: Yes (Death)
  Sender: FDA-Public Use
  Company Number: AU-PFIZER INC-2008082918

PATIENT
  Sex: Male

DRUGS (2)
  1. LIPITOR [Suspect]
  2. DRUG, UNSPECIFIED [Concomitant]

REACTIONS (1)
  - DEATH [None]
